FAERS Safety Report 12894116 (Version 1)
Quarter: 2016Q4

REPORT INFORMATION
  Report Type: Spontaneous
  Country: FR (occurrence: FR)
  Receive Date: 20161028
  Receipt Date: 20161028
  Transmission Date: 20170207
  Serious: Yes (Other)
  Sender: FDA-Public Use
  Company Number: FR-GUERBET LLC-1059009

PATIENT
  Age: 69 Year
  Sex: Male

DRUGS (2)
  1. COUMADIN [Concomitant]
     Active Substance: WARFARIN SODIUM
  2. OPTIRAY PBP [Suspect]
     Active Substance: IOVERSOL
     Indication: COMPUTERISED TOMOGRAM HEAD
     Dates: start: 20160708, end: 20160708

REACTIONS (2)
  - Erythema [Recovered/Resolved]
  - Eyelid oedema [Recovered/Resolved]

NARRATIVE: CASE EVENT DATE: 20160708
